FAERS Safety Report 6216456-8 (Version None)
Quarter: 2009Q2

REPORT INFORMATION
  Report Type: 
  Country: None (occurrence: None)
  Receive Date: 20090605
  Receipt Date: 20090529
  Transmission Date: 20091009
  Serious: Yes (Other)
  Sender: FDA-Public Use
  Company Number: JP-BAYER-200911779BYL

PATIENT
  Age: 15 Year
  Sex: Female
  Weight: 45 kg

DRUGS (15)
  1. FLUDARA [Suspect]
     Indication: ALLOGENIC BONE MARROW TRANSPLANTATION THERAPY
     Dosage: UNIT DOSE: 50 MG
     Route: 042
     Dates: start: 20081211, end: 20081214
  2. BUSULFAN [Concomitant]
     Indication: ALLOGENIC BONE MARROW TRANSPLANTATION THERAPY
     Dosage: HLA:1 LOCUS MISMATCHED RELATED-DONOR
     Route: 042
     Dates: start: 20081208, end: 20081211
  3. MELPHALAN [Concomitant]
     Indication: ALLOGENIC BONE MARROW TRANSPLANTATION THERAPY
     Route: 042
     Dates: start: 20081212, end: 20081213
  4. CLONAZEPAM [Concomitant]
     Indication: CONVULSION PROPHYLAXIS
     Route: 048
     Dates: start: 20081207, end: 20081213
  5. VANCOMYCIN HYDROCHLORIDE [Concomitant]
     Indication: INFECTION PROPHYLAXIS
     Route: 048
     Dates: start: 20081201, end: 20081230
  6. POLYMYXIN-B-SULFATE [Concomitant]
     Indication: INFECTION PROPHYLAXIS
     Route: 048
     Dates: start: 20081201, end: 20081230
  7. FLUCONAZOLE [Concomitant]
     Indication: INFECTION PROPHYLAXIS
     Route: 048
     Dates: start: 20081201
  8. BAKTAR [Concomitant]
     Indication: INFECTION PROPHYLAXIS
     Route: 048
     Dates: start: 20081201, end: 20090327
  9. VICCLOX [Concomitant]
     Indication: INFECTION PROPHYLAXIS
     Route: 048
     Dates: start: 20081208, end: 20090114
  10. DENOSINE [Concomitant]
     Indication: INFECTION PROPHYLAXIS
     Route: 042
     Dates: start: 20081201, end: 20081213
  11. SANDOGLOBULIN [Concomitant]
     Indication: INFECTION PROPHYLAXIS
     Route: 041
     Dates: start: 20081207, end: 20081215
  12. PROGRAF [Concomitant]
     Indication: PROPHYLAXIS AGAINST GRAFT VERSUS HOST DISEASE
     Route: 042
     Dates: start: 20081205, end: 20090115
  13. PROGRAF [Concomitant]
     Route: 048
     Dates: start: 20081205, end: 20090115
  14. CONCENTRATED RED CELLS [Concomitant]
     Route: 041
     Dates: start: 20081210, end: 20081228
  15. PLATELETS [Concomitant]
     Indication: PLATELET TRANSFUSION
     Route: 041
     Dates: start: 20081210, end: 20090104

REACTIONS (2)
  - ACUTE GRAFT VERSUS HOST DISEASE [None]
  - FEBRILE NEUTROPENIA [None]
